FAERS Safety Report 15845619 (Version 2)
Quarter: 2019Q1

REPORT INFORMATION
  Report Type: Spontaneous
  Country: CH (occurrence: CH)
  Receive Date: 20190119
  Receipt Date: 20190125
  Transmission Date: 20190417
  Serious: Yes (Death)
  Sender: FDA-Public Use
  Company Number: CH-STRIDES ARCOLAB LIMITED-2019SP000648

PATIENT
  Age: 73 Year
  Sex: Female

DRUGS (1)
  1. VANCOMYCIN [Suspect]
     Active Substance: VANCOMYCIN
     Indication: CLOSTRIDIUM DIFFICILE INFECTION
     Dosage: 125 MG, QID (CAPSULE)
     Route: 048

REACTIONS (2)
  - Sepsis [Fatal]
  - Cardiac failure [Fatal]
